FAERS Safety Report 20834011 (Version 1)
Quarter: 2022Q2

REPORT INFORMATION
  Report Type: Spontaneous
  Country: US (occurrence: US)
  Receive Date: 20220516
  Receipt Date: 20220516
  Transmission Date: 20220720
  Serious: Yes (Other)
  Sender: FDA-Public Use
  Company Number: US-GLAXOSMITHKLINE-US2022AMR078094

PATIENT

DRUGS (1)
  1. ZEJULA [Suspect]
     Active Substance: NIRAPARIB
     Indication: Product used for unknown indication
     Dosage: UNK

REACTIONS (6)
  - Neuropathy peripheral [Unknown]
  - Fatigue [Unknown]
  - Nausea [Unknown]
  - Photosensitivity reaction [Unknown]
  - Sleep disorder [Unknown]
  - Madarosis [Unknown]
